FAERS Safety Report 8446749-5 (Version None)
Quarter: 2012Q2

REPORT INFORMATION
  Report Type: 
  Country: None (occurrence: None)
  Receive Date: 20120619
  Receipt Date: 20120607
  Transmission Date: 20120825
  Serious: No
  Sender: FDA-Public Use
  Company Number: US-BIOGENIDEC-2012BI020693

PATIENT
  Age: 44 Year
  Sex: Female

DRUGS (2)
  1. TYSABRI [Suspect]
     Indication: MULTIPLE SCLEROSIS
     Route: 042
     Dates: start: 20071205, end: 20091204
  2. TYSABRI [Suspect]
     Route: 042
     Dates: start: 20100723, end: 20110302

REACTIONS (3)
  - HEMIPARESIS [None]
  - TREMOR [None]
  - GAIT DISTURBANCE [None]
